FAERS Safety Report 15275914 (Version 1)
Quarter: 2018Q3

REPORT INFORMATION
  Report Type: Spontaneous
  Country: US (occurrence: US)
  Receive Date: 20180814
  Receipt Date: 20180814
  Transmission Date: 20181010
  Serious: No
  Sender: FDA-Public Use
  Company Number: US-SAMSUNG BIOEPIS-SB-2018-07508

PATIENT
  Age: 60 Year
  Sex: Female

DRUGS (1)
  1. RENFLEXIS [Suspect]
     Active Substance: INFLIXIMAB-ABDA
     Indication: RHEUMATOID ARTHRITIS
     Dosage: UNKNOWN
     Route: 050

REACTIONS (7)
  - Myalgia [Unknown]
  - Dyspnoea [Unknown]
  - Oxygen saturation abnormal [Unknown]
  - Arthralgia [Unknown]
  - Product substitution issue [Unknown]
  - Drug ineffective [Unknown]
  - Body temperature decreased [Unknown]
